FAERS Safety Report 15430255 (Version 1)
Quarter: 2018Q4

REPORT INFORMATION
  Report Type: Spontaneous
  Country: US (occurrence: US)
  Receive Date: 20180926
  Receipt Date: 20180926
  Transmission Date: 20190204
  Serious: No
  Sender: FDA-Public Use
  Company Number: US-ASSERTIO THERAPEUTICS, INC.-US-2018DEP000616

PATIENT

DRUGS (4)
  1. ROPINIROLE. [Concomitant]
     Active Substance: ROPINIROLE
     Indication: RESTLESS LEGS SYNDROME
     Dosage: UNK
  2. CARBIDOPA AND LEVODOPA [Concomitant]
     Active Substance: CARBIDOPA\LEVODOPA
     Indication: PARKINSON^S DISEASE
     Dosage: UNK
  3. GRALISE [Suspect]
     Active Substance: GABAPENTIN
     Indication: PARKINSON^S DISEASE
     Dosage: 900 MG, QD
     Route: 048
     Dates: start: 20180302
  4. GRALISE [Suspect]
     Active Substance: GABAPENTIN
     Indication: PAIN

REACTIONS (8)
  - Tremor [Not Recovered/Not Resolved]
  - Dyspnoea [Not Recovered/Not Resolved]
  - Product use in unapproved indication [Unknown]
  - Hyperhidrosis [Not Recovered/Not Resolved]
  - Drug titration error [Unknown]
  - Feeling hot [Not Recovered/Not Resolved]
  - Hypertension [Recovering/Resolving]
  - Product dose omission [Unknown]

NARRATIVE: CASE EVENT DATE: 20180302
